FAERS Safety Report 15329822 (Version 1)
Quarter: 2018Q3

REPORT INFORMATION
  Report Type: Spontaneous
  Country: US (occurrence: US)
  Receive Date: 20180829
  Receipt Date: 20180829
  Transmission Date: 20181010
  Serious: No
  Sender: FDA-Public Use
  Company Number: US-PFIZER INC-2018336856

PATIENT
  Age: 62 Year
  Sex: Female

DRUGS (1)
  1. GENOTROPIN MQ [Suspect]
     Active Substance: SOMATROPIN
     Dosage: 0.2 MG, DAILY

REACTIONS (20)
  - Fatigue [Unknown]
  - Low density lipoprotein increased [Unknown]
  - Blood cholesterol increased [Unknown]
  - White blood cell disorder [Unknown]
  - Blood testosterone decreased [Unknown]
  - Lymphocyte count increased [Unknown]
  - High density lipoprotein decreased [Unknown]
  - Thyroxine free decreased [Unknown]
  - Tri-iodothyronine increased [Unknown]
  - Glycosylated haemoglobin increased [Unknown]
  - Dysphonia [Unknown]
  - Blood triglycerides increased [Unknown]
  - Blood glucose increased [Unknown]
  - Blood thyroid stimulating hormone decreased [Unknown]
  - Blood urea decreased [Unknown]
  - Blood urea nitrogen/creatinine ratio decreased [Unknown]
  - Epstein-Barr virus infection [Unknown]
  - Blood bilirubin increased [Unknown]
  - Blood prolactin increased [Unknown]
  - Urine leukocyte esterase positive [Unknown]
